FAERS Safety Report 25143188 (Version 2)
Quarter: 2025Q2

REPORT INFORMATION
  Report Type: Spontaneous
  Country: US (occurrence: US)
  Receive Date: 20250401
  Receipt Date: 20250403
  Transmission Date: 20250716
  Serious: No
  Sender: MERCK SHARP AND DOHME
  Company Number: US-009507513-2270289

PATIENT
  Age: 56 Year
  Sex: Female
  Weight: 86.2 kg

DRUGS (20)
  1. SOTATERCEPT [Suspect]
     Active Substance: SOTATERCEPT
     Indication: Product used for unknown indication
     Route: 065
     Dates: end: 202503
  2. SOTATERCEPT [Suspect]
     Active Substance: SOTATERCEPT
  3. SOTATERCEPT [Suspect]
     Active Substance: SOTATERCEPT
  4. SOTATERCEPT [Suspect]
     Active Substance: SOTATERCEPT
  5. TYVASO [Suspect]
     Active Substance: TREPROSTINIL
     Indication: Pulmonary arterial hypertension
     Dosage: STRENGTH: 0.6 MG/ML
     Route: 055
     Dates: start: 20230727
  6. ARNUITY ELLIPTA [Concomitant]
     Active Substance: FLUTICASONE FUROATE
     Route: 065
  7. ALLOPURINOL [Concomitant]
     Active Substance: ALLOPURINOL
     Route: 065
  8. VITAMIN D2 [Concomitant]
     Active Substance: ERGOCALCIFEROL
     Route: 065
  9. TRAMADOL HCL [Concomitant]
     Active Substance: TRAMADOL HYDROCHLORIDE
     Route: 065
  10. METOPROLOL SUCCINATE [Concomitant]
     Active Substance: METOPROLOL SUCCINATE
     Route: 065
  11. VENTOLIN HFA [Concomitant]
     Active Substance: ALBUTEROL SULFATE
     Route: 065
  12. PREDNISONE [Concomitant]
     Active Substance: PREDNISONE
     Route: 065
  13. OXYGEN [Concomitant]
     Active Substance: OXYGEN
     Route: 065
  14. ADCIRCA [Concomitant]
     Active Substance: TADALAFIL
     Route: 065
  15. ESCITALOPRAM [Concomitant]
     Active Substance: ESCITALOPRAM OXALATE
     Route: 065
  16. NEURONTIN [Concomitant]
     Active Substance: GABAPENTIN
     Route: 065
  17. LORAZEPAM [Concomitant]
     Active Substance: LORAZEPAM
     Route: 065
  18. MOUNJARO [Concomitant]
     Active Substance: TIRZEPATIDE
     Route: 065
  19. AMLODIPINE BESYLATE [Concomitant]
     Active Substance: AMLODIPINE BESYLATE
     Route: 065
  20. MELATONIN [Concomitant]
     Active Substance: MELATONIN
     Route: 065

REACTIONS (1)
  - Haemoglobin increased [Unknown]

NARRATIVE: CASE EVENT DATE: 20250310
